FAERS Safety Report 15454434 (Version 2)
Quarter: 2018Q4

REPORT INFORMATION
  Report Type: Spontaneous
  Country: US (occurrence: US)
  Receive Date: 20181002
  Receipt Date: 20181011
  Transmission Date: 20190204
  Serious: Yes (Hospitalization, Other)
  Sender: FDA-Public Use
  Company Number: US-ABBVIE-18S-163-2503557-00

PATIENT
  Age: 31 Year
  Sex: Male
  Weight: 79.45 kg

DRUGS (2)
  1. MARINOL [Suspect]
     Active Substance: DRONABINOL
     Indication: COLITIS ULCERATIVE
     Route: 048
  2. MARINOL [Suspect]
     Active Substance: DRONABINOL
     Indication: APPETITE DISORDER

REACTIONS (9)
  - Gastrointestinal stoma necrosis [Unknown]
  - Proctalgia [Not Recovered/Not Resolved]
  - Weight decreased [Recovered/Resolved]
  - Peripheral swelling [Recovered/Resolved]
  - Vomiting [Recovered/Resolved]
  - Leukocytosis [Recovering/Resolving]
  - Loss of personal independence in daily activities [Recovering/Resolving]
  - Pain [Unknown]
  - Bronchitis [Recovering/Resolving]

NARRATIVE: CASE EVENT DATE: 201801
